FAERS Safety Report 7199835-4 (Version None)
Quarter: 2010Q4

REPORT INFORMATION
  Report Type: 
  Country: None (occurrence: None)
  Receive Date: 20101228
  Receipt Date: 20101220
  Transmission Date: 20110411
  Serious: Yes (Other)
  Sender: FDA-Public Use
  Company Number: US-ROCHE-750034

PATIENT
  Age: 35 Year
  Sex: Male

DRUGS (2)
  1. MYCOPHENOLATE MOFETIL [Suspect]
     Route: 065
  2. TACROLIMUS [Concomitant]

REACTIONS (2)
  - COLITIS [None]
  - TRANSPLANT FAILURE [None]
